FAERS Safety Report 11112940 (Version 1)
Quarter: 2015Q2

REPORT INFORMATION
  Report Type: Spontaneous
  Country: US (occurrence: None)
  Receive Date: 20150504
  Receipt Date: 20150504
  Transmission Date: 20150821
  Serious: Yes (Life-Threatening)
  Sender: FDA-Public Use
  Company Number: 1363801

PATIENT
  Age: 79 Year
  Sex: Female
  Weight: 49.53 kg

DRUGS (5)
  1. OXALIPLATIN (OXALIPLATIN) [Concomitant]
     Active Substance: OXALIPLATIN
  2. FOLINIC ACID (FOLINIC ACID) [Concomitant]
     Active Substance: LEUCOVORIN
  3. AVASTIN [Suspect]
     Active Substance: BEVACIZUMAB
     Indication: PRODUCT USED FOR UNKNOWN INDICATION
     Dates: start: 20140210, end: 20140224
  4. FLUOROURACIL (FLUOROURACIL) [Concomitant]
     Active Substance: FLUOROURACIL
  5. VITAMIN D3 (CHOLECALCIFEROL) (TABLET) [Concomitant]

REACTIONS (3)
  - Neutropenia [None]
  - Febrile neutropenia [None]
  - Colitis [None]

NARRATIVE: CASE EVENT DATE: 20140309
